FAERS Safety Report 10359143 (Version 2)
Quarter: 2014Q3

REPORT INFORMATION
  Report Type: Report from Study
  Country: NL (occurrence: NL)
  Receive Date: 20140804
  Receipt Date: 20140804
  Transmission Date: 20150326
  Serious: Yes (Other)
  Sender: FDA-Public Use
  Company Number: NL-OTSUKA-US-2013-10021

PATIENT
  Age: 48 Year
  Sex: Male

DRUGS (7)
  1. PANTOPRAZOLE [Concomitant]
     Active Substance: PANTOPRAZOLE SODIUM
     Indication: REFLUX GASTRITIS
     Dosage: 40 MG MILLIGRAM(S), PRN
     Route: 048
     Dates: start: 20121117, end: 20121124
  2. PARACETAMOL [Concomitant]
     Active Substance: ACETAMINOPHEN
     Indication: CELLULITIS
     Dosage: 1 G GRAM(S), DAILY DOSE
     Route: 048
     Dates: start: 20121229, end: 20130106
  3. OPC-41061 [Suspect]
     Active Substance: TOLVAPTAN
     Indication: CONGENITAL CYSTIC KIDNEY DISEASE
     Dosage: 90/30 MG MILLIGRAM(S), DAILY DOSE
     Route: 048
     Dates: start: 20110322, end: 20130111
  4. OPC-41061 [Suspect]
     Active Substance: TOLVAPTAN
     Dosage: 60/30 MG MILLIGRAM(S), DAILY DOSE
     Route: 048
     Dates: start: 20130404
  5. DICLOFENAC [Concomitant]
     Active Substance: DICLOFENAC
     Indication: CELLULITIS
     Dosage: 150 MG MILLIGRAM(S), DAILY DOSE
     Route: 048
     Dates: start: 20130104, end: 20130105
  6. OPC-41061 [Suspect]
     Active Substance: TOLVAPTAN
     Dosage: 45/15 MG MILLIGRAM(S), DAILY DOSE
     Route: 048
     Dates: start: 20130326, end: 20130403
  7. FLUCLOXACILLIN [Concomitant]
     Active Substance: FLUCLOXACILLIN
     Indication: CELLULITIS
     Dosage: 3 G GRAM(S), DAILY DOSE
     Route: 048
     Dates: start: 20130103, end: 20130108

REACTIONS (1)
  - Deep vein thrombosis [Recovered/Resolved]

NARRATIVE: CASE EVENT DATE: 20130106
